FAERS Safety Report 12196332 (Version 3)
Quarter: 2016Q2

REPORT INFORMATION
  Report Type: Spontaneous
  Country: JP (occurrence: JP)
  Receive Date: 20160321
  Receipt Date: 20160404
  Transmission Date: 20160815
  Serious: Yes (Death, Other)
  Sender: FDA-Public Use
  Company Number: JP-JNJFOC-20160316271

PATIENT
  Sex: Male

DRUGS (3)
  1. REMICADE [Suspect]
     Active Substance: INFLIXIMAB
     Indication: GRAFT VERSUS HOST DISEASE
     Route: 042
  2. ETANERCEPT [Suspect]
     Active Substance: ETANERCEPT
     Indication: GRAFT VERSUS HOST DISEASE
     Route: 065
  3. MYCOPHENOLATE MOFETIL. [Suspect]
     Active Substance: MYCOPHENOLATE MOFETIL
     Indication: GRAFT VERSUS HOST DISEASE
     Route: 065

REACTIONS (4)
  - Product use issue [Unknown]
  - Aspergilloma [Unknown]
  - Thrombotic microangiopathy [Fatal]
  - Off label use [Unknown]
